FAERS Safety Report 12828436 (Version 24)
Quarter: 2019Q2

REPORT INFORMATION
  Report Type: Spontaneous
  Country: CL (occurrence: CL)
  Receive Date: 20161007
  Receipt Date: 20190516
  Transmission Date: 20190711
  Serious: Yes (Death, Hospitalization, Other)
  Sender: FDA-Public Use
  Company Number: CL-BIOMARINAP-CL-2016-111365

PATIENT
  Age: 11 Year
  Sex: Female
  Weight: 20 kg

DRUGS (7)
  1. ALDURAZYME [Suspect]
     Active Substance: LARONIDASE
     Dosage: 4 DOSAGE FORM, QW
     Route: 041
     Dates: start: 20160928, end: 2017
  2. FUROSEMIDE. [Concomitant]
     Active Substance: FUROSEMIDE
     Indication: PRODUCT USED FOR UNKNOWN INDICATION
     Dosage: UNK
  3. CAPTOPRIL. [Concomitant]
     Active Substance: CAPTOPRIL
     Indication: PRODUCT USED FOR UNKNOWN INDICATION
     Dosage: UNK
  4. ALDURAZYME [Suspect]
     Active Substance: LARONIDASE
     Dosage: 4 DOSAGE FORM, QW
     Route: 041
  5. SILDENAFIL. [Concomitant]
     Active Substance: SILDENAFIL
     Indication: PRODUCT USED FOR UNKNOWN INDICATION
     Dosage: UNK
  6. METHADONE [Concomitant]
     Active Substance: METHADONE HYDROCHLORIDE
     Indication: PRODUCT USED FOR UNKNOWN INDICATION
     Dosage: UNK
  7. ALDURAZYME [Suspect]
     Active Substance: LARONIDASE
     Indication: MUCOPOLYSACCHARIDOSIS I
     Dosage: 4 DOSAGE FORM, QW
     Route: 041
     Dates: start: 2010, end: 20160916

REACTIONS (28)
  - Death [Fatal]
  - Salivary hypersecretion [Not Recovered/Not Resolved]
  - Dysphagia [Not Recovered/Not Resolved]
  - Pneumonia [Recovered/Resolved]
  - Cerebral atrophy [Not Recovered/Not Resolved]
  - Obstructive airways disorder [Recovered/Resolved]
  - Abdominal distension [Recovering/Resolving]
  - Upper respiratory tract congestion [Recovering/Resolving]
  - Dyskinesia [Unknown]
  - Generalised tonic-clonic seizure [Unknown]
  - Thrombosis [Recovering/Resolving]
  - Pneumonia aspiration [Recovering/Resolving]
  - Nasal congestion [Recovered/Resolved]
  - Oedema peripheral [Recovered/Resolved]
  - Dyskinesia [Recovering/Resolving]
  - Ear infection [Recovered/Resolved]
  - Oxygen saturation decreased [Recovered/Resolved]
  - Bradycardia [Recovered/Resolved]
  - Laryngitis [Recovered/Resolved]
  - Oedema peripheral [Recovering/Resolving]
  - Respiratory symptom [Recovered/Resolved]
  - Nasopharyngitis [Recovered/Resolved]
  - Epilepsy [Unknown]
  - Rectal haemorrhage [Recovered/Resolved]
  - Seizure [Recovered/Resolved]
  - Cerebral ventricle dilatation [Not Recovered/Not Resolved]
  - Headache [Not Recovered/Not Resolved]
  - Diarrhoea [Recovered/Resolved]

NARRATIVE: CASE EVENT DATE: 20160408
